FAERS Safety Report 18054191 (Version 2)
Quarter: 2020Q3

REPORT INFORMATION
  Report Type: Spontaneous
  Country: US (occurrence: US)
  Receive Date: 20200722
  Receipt Date: 20200730
  Transmission Date: 20201103
  Serious: No
  Sender: FDA-Public Use
  Company Number: US-PFIZER INC-2020279309

PATIENT
  Sex: Male

DRUGS (1)
  1. PREMARIN [Suspect]
     Active Substance: ESTROGENS, CONJUGATED
     Dosage: UNK
     Route: 050

REACTIONS (3)
  - Exposure via partner [Unknown]
  - Therapeutic response unexpected [Unknown]
  - Sexually active [Unknown]
